FAERS Safety Report 10548224 (Version 1)
Quarter: 2014Q4

REPORT INFORMATION
  Report Type: Spontaneous
  Country: US (occurrence: None)
  Receive Date: 20141024
  Receipt Date: 20141024
  Transmission Date: 20150529
  Serious: Yes (Hospitalization)
  Sender: FDA-Public Use
  Company Number: US-017418

PATIENT
  Sex: Male

DRUGS (1)
  1. FIRMAGON [Suspect]
     Active Substance: DEGARELIX ACETATE
     Indication: PRODUCT USED FOR UNKNOWN INDICATION
     Dates: end: 2012

REACTIONS (3)
  - Feeling abnormal [None]
  - Hot flush [None]
  - Hypotension [None]

NARRATIVE: CASE EVENT DATE: 201410
